FAERS Safety Report 5467385-9 (Version None)
Quarter: 2007Q3

REPORT INFORMATION
  Report Type: 
  Country: None (occurrence: None)
  Receive Date: 20070925
  Receipt Date: 20070913
  Transmission Date: 20080115
  Serious: Yes (Hospitalization, Other)
  Sender: FDA-Public Use
  Company Number: US-PFIZER INC-2007073518

PATIENT
  Sex: Male
  Weight: 33 kg

DRUGS (1)
  1. DILANTIN [Suspect]
     Indication: GRAND MAL CONVULSION
     Dates: start: 19990718, end: 19990802

REACTIONS (8)
  - BLINDNESS UNILATERAL [None]
  - MULTI-ORGAN FAILURE [None]
  - NERVE INJURY [None]
  - RESPIRATORY DISTRESS [None]
  - SEPSIS [None]
  - STEVENS-JOHNSON SYNDROME [None]
  - TOXIC EPIDERMAL NECROLYSIS [None]
  - VISUAL ACUITY REDUCED [None]
